FAERS Safety Report 4521067-6 (Version None)
Quarter: 2004Q4

REPORT INFORMATION
  Report Type: 
  Country: None (occurrence: None)
  Receive Date: 20041203
  Receipt Date: 20041126
  Transmission Date: 20050328
  Serious: Yes (Hospitalization)
  Sender: FDA-Public Use
  Company Number: GBWYE241530NOV04

PATIENT
  Age: 14 Year
  Sex: Female

DRUGS (1)
  1. MINOCIN [Suspect]
     Indication: ACNE
     Route: 048
     Dates: start: 20040913, end: 20041018

REACTIONS (5)
  - BENIGN INTRACRANIAL HYPERTENSION [None]
  - MYALGIA [None]
  - NAUSEA [None]
  - VOMITING [None]
  - WEIGHT DECREASED [None]
